FAERS Safety Report 7269430-7 (Version None)
Quarter: 2011Q1

REPORT INFORMATION
  Report Type: 
  Country: None (occurrence: None)
  Receive Date: 20110125
  Receipt Date: 20110112
  Transmission Date: 20110831
  Serious: Yes (Other)
  Sender: FDA-Public Use
  Company Number: JP-001280

PATIENT
  Sex: Male

DRUGS (1)
  1. NAGLAZYME [Suspect]
     Indication: MUCOPOLYSACCHARIDOSIS VI
     Dosage: (DOSE AND FREQUENCY NOT REPORTED INTRAVENOUS DRIP)
     Route: 041
     Dates: start: 20091130

REACTIONS (4)
  - METAMYELOCYTE COUNT INCREASED [None]
  - NEUTROPHIL COUNT DECREASED [None]
  - WHITE BLOOD CELL COUNT INCREASED [None]
  - LYMPHOCYTE COUNT INCREASED [None]
